FAERS Safety Report 7327876-2 (Version None)
Quarter: 2011Q1

REPORT INFORMATION
  Report Type: 
  Country: None (occurrence: None)
  Receive Date: 20110303
  Receipt Date: 20110219
  Transmission Date: 20110831
  Serious: Yes (Other)
  Sender: FDA-Public Use
  Company Number: US-JNJFOC-20110207122

PATIENT
  Sex: Female
  Weight: 60.78 kg

DRUGS (6)
  1. METOPROLOL [Concomitant]
     Indication: HYPERTENSION
     Route: 048
  2. DOXIL [Suspect]
     Indication: FALLOPIAN TUBE CANCER
     Route: 042
  3. LIPITOR [Suspect]
     Indication: BLOOD CHOLESTEROL
     Route: 048
  4. LASIX [Concomitant]
     Indication: HYPERTENSION
     Route: 048
  5. FOLIC ACID [Concomitant]
     Route: 048
  6. POTASSIUM [Concomitant]
     Route: 048

REACTIONS (2)
  - HEPATIC ENZYME INCREASED [None]
  - CHROMATURIA [None]
